FAERS Safety Report 8776271 (Version 1)
Quarter: 2012Q4

REPORT INFORMATION
  Report Type: 
  Country: US (occurrence: US)
  Receive Date: 20120910
  Receipt Date: 20120910
  Transmission Date: 20130627
  Serious: Yes (Death, Other)
  Sender: FDA-Public Use
  Company Number: US-RANBAXY-2012US-59863

PATIENT
  Sex: Male
  Weight: 94.33 kg

DRUGS (9)
  1. GABAPENTIN [Suspect]
     Indication: NEUROPATHY PERIPHERAL
     Dosage: UNK
     Route: 065
  2. TRAMADOL [Suspect]
     Indication: MIGRAINE
     Dosage: UNK
     Route: 065
  3. INTELENCE [Suspect]
     Indication: HIV INFECTION
     Dosage: 200 mg, bid
     Route: 065
  4. NORVIR [Suspect]
     Indication: HIV INFECTION
     Dosage: UNK
     Route: 065
     Dates: end: 2007
  5. ISENTRESS [Suspect]
     Indication: HIV INFECTION
     Dosage: 400 mg, bid
     Route: 065
  6. FLOMAX [Suspect]
     Indication: PROSTATOMEGALY
     Dosage: 0.4 mg,daily
     Route: 065
  7. VICODIN [Suspect]
     Indication: PAIN IN EXTREMITY
     Dosage: UNK
     Route: 065
  8. ALCOHOL [Interacting]
     Indication: PRODUCT USED FOR UNKNOWN INDICATION
     Dosage: UNK
     Route: 065
  9. IBUPROFEN [Concomitant]
     Indication: PRODUCT USED FOR UNKNOWN INDICATION
     Dosage: UNK
     Route: 065

REACTIONS (11)
  - Neuropathy peripheral [Unknown]
  - Alcohol interaction [Unknown]
  - Hypersensitivity [Unknown]
  - Urinary tract infection [Recovered/Resolved]
  - Prostatomegaly [Recovered/Resolved]
  - Abdominal pain [Recovered/Resolved]
  - Blood urine present [Recovered/Resolved]
  - Erectile dysfunction [Unknown]
  - Lip disorder [Unknown]
  - Drug ineffective [Unknown]
  - Somnolence [Unknown]
